FAERS Safety Report 9477151 (Version 1)
Quarter: 2013Q3

REPORT INFORMATION
  Report Type: Spontaneous
  Country: US (occurrence: US)
  Receive Date: 20130826
  Receipt Date: 20130826
  Transmission Date: 20140515
  Serious: No
  Sender: FDA-Public Use
  Company Number: US-PFIZER INC-2013242710

PATIENT
  Sex: Female

DRUGS (2)
  1. LYRICA [Suspect]
     Dosage: 150 MG
  2. ALCOHOL [Suspect]
     Dosage: 0.5 MG, 6 TIMES A DAY

REACTIONS (1)
  - Abnormal behaviour [Unknown]
